FAERS Safety Report 13917651 (Version 3)
Quarter: 2018Q3

REPORT INFORMATION
  Report Type: Report from Study
  Country: US (occurrence: US)
  Receive Date: 20170829
  Receipt Date: 20180717
  Transmission Date: 20181010
  Serious: Yes (Death, Other)
  Sender: FDA-Public Use
  Company Number: US-SA-2017SA156852

PATIENT
  Sex: Female

DRUGS (3)
  1. LASIX [Suspect]
     Active Substance: FUROSEMIDE
     Indication: PRODUCT USED FOR UNKNOWN INDICATION
     Dosage: UNK UNK,UNK
     Route: 048
  2. ROBAXIN [Suspect]
     Active Substance: METHOCARBAMOL
     Dosage: UNK UNK,UNK
     Route: 065
  3. TERIFLUNOMIDE [Suspect]
     Active Substance: TERIFLUNOMIDE
     Indication: MULTIPLE SCLEROSIS
     Dosage: 14 MG, QD
     Route: 048
     Dates: start: 20150817

REACTIONS (7)
  - Fluid overload [Fatal]
  - Joint swelling [Fatal]
  - Dyspnoea [Fatal]
  - Chronic obstructive pulmonary disease [Unknown]
  - Cardiac failure congestive [Unknown]
  - Dialysis [Unknown]
  - Unevaluable event [Unknown]
